FAERS Safety Report 9271276 (Version 1)
Quarter: 2013Q2

REPORT INFORMATION
  Report Type: Spontaneous
  Country: GB (occurrence: GB)
  Receive Date: 20130506
  Receipt Date: 20130506
  Transmission Date: 20140414
  Serious: Yes (Other)
  Sender: FDA-Public Use
  Company Number: GB-AMGEN-GBRSP2013030367

PATIENT
  Sex: Female
  Weight: 44 kg

DRUGS (1)
  1. DENOSUMAB [Suspect]
     Indication: OSTEOPOROSIS
     Dosage: 60 MG, UNK
     Dates: start: 20130221

REACTIONS (1)
  - Vasculitic rash [Recovering/Resolving]
